FAERS Safety Report 6442352-7 (Version None)
Quarter: 2009Q4

REPORT INFORMATION
  Report Type: 
  Country: None (occurrence: None)
  Receive Date: 20091112
  Receipt Date: 20091027
  Transmission Date: 20100525
  Serious: Yes (Other)
  Sender: FDA-Public Use
  Company Number: 2009003292

PATIENT
  Age: 65 Year
  Sex: Male

DRUGS (3)
  1. TARCEVA [Suspect]
     Indication: SQUAMOUS CELL CARCINOMA
     Dosage: (150 MG, QD), ORAL
     Route: 048
     Dates: start: 20080825
  2. AMINOPHYLLIN [Suspect]
     Indication: CHEST DISCOMFORT
     Dosage: ORAL
     Route: 048
     Dates: start: 20080101
  3. NITROGLYCERIN [Suspect]
     Indication: CHEST DISCOMFORT
     Dates: start: 20080101

REACTIONS (13)
  - ATRIAL FIBRILLATION [None]
  - ATRIOVENTRICULAR BLOCK [None]
  - COUGH [None]
  - CYANOSIS [None]
  - HYPERHIDROSIS [None]
  - LOSS OF CONSCIOUSNESS [None]
  - NODAL RHYTHM [None]
  - RESPIRATORY RATE INCREASED [None]
  - SINUS ARREST [None]
  - SUPRAVENTRICULAR EXTRASYSTOLES [None]
  - TACHYPNOEA [None]
  - VENTRICULAR EXTRASYSTOLES [None]
  - WHEEZING [None]
